FAERS Safety Report 12175958 (Version 1)
Quarter: 2016Q1

REPORT INFORMATION
  Report Type: Spontaneous
  Country: US (occurrence: US)
  Receive Date: 20160314
  Receipt Date: 20160314
  Transmission Date: 20160526
  Serious: No
  Sender: FDA-Public Use
  Company Number: US-ENDO PHARMACEUTICALS INC.-2015-003714

PATIENT
  Age: 73 Year
  Sex: Male
  Weight: 81.72 kg

DRUGS (2)
  1. XIAFLEX [Suspect]
     Active Substance: COLLAGENASE CLOSTRIDIUM HISTOLYTICUM
     Indication: DUPUYTREN^S CONTRACTURE
     Dosage: 1 INJECTON INTO MP JOINT OF RIGHT RING FINGER
     Route: 065
     Dates: start: 20151026
  2. XIAFLEX [Suspect]
     Active Substance: COLLAGENASE CLOSTRIDIUM HISTOLYTICUM
     Dosage: INJECTION INTO UNKNOWN HAND AND JOINT
     Route: 065

REACTIONS (5)
  - Contusion [Unknown]
  - Ecchymosis [Unknown]
  - Tenderness [Unknown]
  - Swelling [Unknown]
  - Drug ineffective [Unknown]

NARRATIVE: CASE EVENT DATE: 20151026
